FAERS Safety Report 11687909 (Version 1)
Quarter: 2015Q4

REPORT INFORMATION
  Report Type: Spontaneous
  Country: US (occurrence: US)
  Receive Date: 20151030
  Receipt Date: 20151030
  Transmission Date: 20160304
  Serious: Yes (Life-Threatening, Hospitalization, Other)
  Sender: FDA-Public Use
  Company Number: US-ASTRAZENECA-2015SF03606

PATIENT
  Age: 56 Year
  Sex: Female
  Weight: 54 kg

DRUGS (12)
  1. LORAZEPAM. [Concomitant]
     Active Substance: LORAZEPAM
     Indication: ANXIETY
     Route: 065
  2. VITAMIN C AND D [Concomitant]
     Indication: SUPPLEMENTATION THERAPY
     Dosage: DAILY
     Route: 065
  3. METHYLPREDNISOLONE. [Concomitant]
     Active Substance: METHYLPREDNISOLONE
     Indication: PAIN IN EXTREMITY
     Dosage: 8MG IN THE MORNING, 4 MG IN THE AFTERNOON, AND 8 MG AT NIGHT
     Route: 065
     Dates: start: 20151019
  4. EXCEDRIN [Concomitant]
     Active Substance: ACETAMINOPHEN\ASPIRIN\CAFFEINE
     Indication: MIGRAINE
     Dosage: AS REQUIRED
     Route: 065
  5. TOPROL XL [Suspect]
     Active Substance: METOPROLOL SUCCINATE
     Indication: HYPERTROPHIC CARDIOMYOPATHY
     Route: 048
     Dates: start: 2014
  6. METHYLPREDNISOLONE. [Concomitant]
     Active Substance: METHYLPREDNISOLONE
     Indication: PAIN IN EXTREMITY
     Route: 065
  7. TOPROL XL [Suspect]
     Active Substance: METOPROLOL SUCCINATE
     Indication: HYPERTROPHIC CARDIOMYOPATHY
     Route: 048
  8. FIORICET [Concomitant]
     Active Substance: ACETAMINOPHEN\BUTALBITAL\CAFFEINE
     Indication: MIGRAINE
     Dosage: AS REQUIRED
     Route: 065
  9. ADVIL [Concomitant]
     Active Substance: IBUPROFEN
     Indication: PAIN
     Route: 065
  10. TOPROL XL [Suspect]
     Active Substance: METOPROLOL SUCCINATE
     Indication: HYPERTROPHIC CARDIOMYOPATHY
     Route: 048
     Dates: start: 2013
  11. MULTIVITAMIN [Concomitant]
     Active Substance: VITAMINS
     Indication: VITAMIN SUPPLEMENTATION
     Route: 065
  12. VITAMINS NOS [Concomitant]
     Active Substance: VITAMINS
     Indication: MACULAR DEGENERATION
     Dosage: DAILY
     Route: 065

REACTIONS (24)
  - Arthritis infective [Unknown]
  - Atrioventricular block complete [Unknown]
  - Pain in extremity [Unknown]
  - Vitreous floaters [Unknown]
  - Pneumonia [Unknown]
  - Foot fracture [Unknown]
  - Malaise [Unknown]
  - Dizziness [Unknown]
  - Weight increased [Unknown]
  - Cardiac disorder [Unknown]
  - Therapy change [Unknown]
  - Product use issue [Unknown]
  - Gait disturbance [Unknown]
  - Drug ineffective [Unknown]
  - Chest pain [Unknown]
  - Medical device site infection [Unknown]
  - Sepsis [Unknown]
  - Pain [Unknown]
  - Off label use [Unknown]
  - Dyspnoea [Unknown]
  - Weight decreased [Unknown]
  - Muscle contracture [Unknown]
  - Vitamin D decreased [Unknown]
  - Anxiety [Unknown]

NARRATIVE: CASE EVENT DATE: 2013
